FAERS Safety Report 12253266 (Version 1)
Quarter: 2016Q2

REPORT INFORMATION
  Report Type: Spontaneous
  Country: US (occurrence: None)
  Receive Date: 20160408
  Receipt Date: 20160408
  Transmission Date: 20160815
  Serious: Yes (Death, Hospitalization)
  Sender: FDA-Public Use
  Company Number: None

PATIENT
  Age: 66 Year
  Sex: Male
  Weight: 80.5 kg

DRUGS (3)
  1. CARBOPLATIN. [Suspect]
     Active Substance: CARBOPLATIN
     Dates: end: 20110808
  2. TAXOL [Suspect]
     Active Substance: PACLITAXEL
     Dates: end: 20110808
  3. BEVACIZUMAB (RHUMAB VEGF) [Suspect]
     Active Substance: BEVACIZUMAB
     Dates: end: 20110808

REACTIONS (6)
  - Chest pain [None]
  - Abdominal pain [None]
  - Pneumonia [None]
  - Pulmonary embolism [None]
  - Ileus [None]
  - Respiratory failure [None]

NARRATIVE: CASE EVENT DATE: 20110822
